FAERS Safety Report 15592792 (Version 1)
Quarter: 2018Q4

REPORT INFORMATION
  Report Type: Spontaneous
  Country: US (occurrence: US)
  Receive Date: 20181107
  Receipt Date: 20181107
  Transmission Date: 20190205
  Serious: Yes (Life-Threatening, Hospitalization)
  Sender: FDA-Public Use
  Company Number: None

PATIENT
  Age: 0 Day
  Sex: Female

DRUGS (2)
  1. WARFARIN [Suspect]
     Active Substance: WARFARIN
  2. CELECOXIB. [Suspect]
     Active Substance: CELECOXIB

REACTIONS (3)
  - International normalised ratio decreased [None]
  - Subdural haemorrhage [None]
  - Mental status changes [None]

NARRATIVE: CASE EVENT DATE: 20180318
